FAERS Safety Report 7174838-4 (Version None)
Quarter: 2010Q4

REPORT INFORMATION
  Report Type: 
  Country: None (occurrence: None)
  Receive Date: 20101219
  Receipt Date: 20100519
  Transmission Date: 20110411
  Serious: No
  Sender: FDA-Public Use
  Company Number: US-AMGEN-KDL401976

PATIENT

DRUGS (10)
  1. ENBREL [Suspect]
     Indication: PSORIASIS
     Dosage: 50 MG, 2 TIMES/WK
     Route: 058
     Dates: start: 20100315, end: 20100324
  2. LEVOTHYROXINE SODIUM [Concomitant]
  3. CLOBETASOL [Concomitant]
     Dosage: .05 %, UNK
  4. CALCIPOTRIENE [Concomitant]
  5. TAZAROTENE [Concomitant]
  6. ALPRAZOLAM [Concomitant]
     Dosage: UNK UNK, PRN
  7. FUROSEMIDE [Concomitant]
     Dosage: UNK UNK, PRN
  8. LISINOPRIL [Concomitant]
  9. OXYCODONE [Concomitant]
  10. DULOXETIME HYDROCHLORIDE [Concomitant]

REACTIONS (15)
  - BLOOD BILIRUBIN INCREASED [None]
  - DISCOMFORT [None]
  - DYSPNOEA [None]
  - ERYTHEMA [None]
  - FEELING ABNORMAL [None]
  - GAIT DISTURBANCE [None]
  - HYPERHIDROSIS [None]
  - HYPERSENSITIVITY [None]
  - LYMPHOCYTE COUNT ABNORMAL [None]
  - NAIL DISCOLOURATION [None]
  - OEDEMA PERIPHERAL [None]
  - PLATELET COUNT ABNORMAL [None]
  - PSORIASIS [None]
  - PURPURA [None]
  - SWELLING FACE [None]
